FAERS Safety Report 9678938 (Version 2)
Quarter: 2013Q4

REPORT INFORMATION
  Report Type: Report from Study
  Country: US (occurrence: US)
  Receive Date: 20131108
  Receipt Date: 20131108
  Transmission Date: 20140711
  Serious: Yes (Other)
  Sender: FDA-Public Use
  Company Number: US-ABBVIE-13P-163-1142222-00

PATIENT
  Age: 13 Year
  Sex: Male
  Weight: 54.48 kg

DRUGS (4)
  1. HUMIRA [Suspect]
     Indication: SPONDYLOARTHROPATHY
     Route: 058
     Dates: start: 201205, end: 201208
  2. HUMIRA [Suspect]
     Dosage: ONE DOSE
     Route: 058
     Dates: start: 201211, end: 201211
  3. HUMIRA [Suspect]
     Route: 058
     Dates: start: 201303, end: 201303
  4. HUMIRA [Suspect]
     Route: 058
     Dates: start: 201304

REACTIONS (10)
  - Serum sickness [Recovered/Resolved]
  - Pyrexia [Recovered/Resolved]
  - Nausea [Recovered/Resolved]
  - Off label use [Unknown]
  - Spinal osteoarthritis [Recovered/Resolved]
  - Spinal osteoarthritis [Recovered/Resolved]
  - Gait disturbance [Recovered/Resolved]
  - Sacroiliitis [Recovered/Resolved]
  - Spondyloarthropathy [Recovered/Resolved]
  - Abscess limb [Unknown]
